FAERS Safety Report 22265927 (Version 2)
Quarter: 2023Q2

REPORT INFORMATION
  Report Type: Report from Study
  Country: DE (occurrence: DE)
  Receive Date: 20230428
  Receipt Date: 20230508
  Transmission Date: 20230722
  Serious: Yes (Hospitalization)
  Sender: FDA-Public Use
  Company Number: DE-TEVA-2023-DE-2880554

PATIENT
  Age: 60 Year
  Sex: Female

DRUGS (1)
  1. COPAXONE [Suspect]
     Active Substance: GLATIRAMER ACETATE
     Indication: Multiple sclerosis
     Dates: start: 20190527

REACTIONS (9)
  - Necrosis [Recovered/Resolved]
  - Swelling [Unknown]
  - Erythema [Unknown]
  - Hypersensitivity [Recovering/Resolving]
  - Peripheral swelling [Recovering/Resolving]
  - Lymphatic obstruction [Recovering/Resolving]
  - Inflammation [Recovering/Resolving]
  - Pain in extremity [Recovered/Resolved]
  - Pustule [Recovered/Resolved]

NARRATIVE: CASE EVENT DATE: 20220215
